FAERS Safety Report 8252931-2 (Version None)
Quarter: 2012Q2

REPORT INFORMATION
  Report Type: 
  Country: None (occurrence: None)
  Receive Date: 20120402
  Receipt Date: 20120127
  Transmission Date: 20120825
  Serious: No
  Sender: FDA-Public Use
  Company Number: US-ABBOTT-12P-163-0898644-00

PATIENT
  Sex: Male
  Weight: 77.18 kg

DRUGS (4)
  1. MUCINEX [Concomitant]
     Indication: PRODUCT USED FOR UNKNOWN INDICATION
  2. ANDROGEL [Suspect]
     Indication: BLOOD TESTOSTERONE DECREASED
     Dosage: NOW 5 PACKETS A DAY OF 1%
  3. HYDROMORPHONE HCL [Concomitant]
     Indication: BACK PAIN
  4. ANDROGEL [Suspect]

REACTIONS (1)
  - TESTICULAR DISORDER [None]
